FAERS Safety Report 19786063 (Version 1)
Quarter: 2021Q3

REPORT INFORMATION
  Report Type: Report from Study
  Country: IT (occurrence: IT)
  Receive Date: 20210903
  Receipt Date: 20210903
  Transmission Date: 20211014
  Serious: Yes (Other)
  Sender: FDA-Public Use
  Company Number: IT-TEVA-2021-IT-1947770

PATIENT
  Age: 88 Year
  Sex: Female

DRUGS (4)
  1. LIXIANA 60 MG FILM?COATED TABLETS [Concomitant]
     Active Substance: EDOXABAN TOSYLATE
  2. LASIX [Concomitant]
     Active Substance: FUROSEMIDE
     Dosage: 2DOSAGEFORM
  3. BISOPROLOL FUMARATE. [Suspect]
     Active Substance: BISOPROLOL FUMARATE
     Dosage: 5MILLIGRAM
     Dates: start: 20210101, end: 20210818
  4. PANTOPRAZOLE [Concomitant]
     Active Substance: PANTOPRAZOLE
     Dosage: 20MILLIGRAM

REACTIONS (1)
  - Sinus bradycardia [Recovering/Resolving]

NARRATIVE: CASE EVENT DATE: 20210802
